FAERS Safety Report 9819340 (Version 3)
Quarter: 2014Q1

REPORT INFORMATION
  Report Type: Spontaneous
  Country: NL (occurrence: NL)
  Receive Date: 20140115
  Receipt Date: 20140324
  Transmission Date: 20141002
  Serious: Yes (Other)
  Sender: FDA-Public Use
  Company Number: NL-PFIZER INC-2014010758

PATIENT
  Age: 58 Year
  Sex: Male
  Weight: 108 kg

DRUGS (4)
  1. ATORVASTATINE PFIZER [Suspect]
     Indication: HYPERCHOLESTEROLAEMIA
     Dosage: 20 MG, UNK
     Dates: start: 20120703, end: 20131230
  2. CANDESARTAN [Concomitant]
     Indication: CARDIOVASCULAR EVENT PROPHYLAXIS
     Dosage: 8 MG, 1X/DAY
     Route: 048
     Dates: start: 2011
  3. HYDROCHLOROTHIAZIDE [Concomitant]
     Indication: CARDIOVASCULAR EVENT PROPHYLAXIS
     Dosage: 12.5 MG, 1X/DAY
     Route: 048
     Dates: start: 2011
  4. METOPROLOL SUCCINATE [Concomitant]
     Indication: CARDIOVASCULAR EVENT PROPHYLAXIS
     Dosage: 50 MG, 1X/DAY
     Dates: start: 2011

REACTIONS (3)
  - Hypertrophic cardiomyopathy [Recovering/Resolving]
  - Myalgia [Recovering/Resolving]
  - Headache [Recovering/Resolving]
